FAERS Safety Report 7890992-0 (Version None)
Quarter: 2011Q4

REPORT INFORMATION
  Report Type: 
  Country: None (occurrence: None)
  Receive Date: 20111103
  Receipt Date: 20110728
  Transmission Date: 20120403
  Serious: No
  Sender: FDA-Public Use
  Company Number: US-AMGEN-USASP2011038426

PATIENT
  Sex: Female

DRUGS (1)
  1. ENBREL [Suspect]
     Indication: PSORIATIC ARTHROPATHY
     Dosage: 50 MG, QWK
     Dates: start: 20090501, end: 20110706

REACTIONS (6)
  - ERYTHEMA [None]
  - SKIN INDURATION [None]
  - LOCAL SWELLING [None]
  - SKELETAL INJURY [None]
  - FEELING HOT [None]
  - LOWER EXTREMITY MASS [None]
